FAERS Safety Report 25661444 (Version 4)
Quarter: 2025Q3

REPORT INFORMATION
  Report Type: Report from Study
  Country: US (occurrence: US)
  Receive Date: 20250808
  Receipt Date: 20250926
  Transmission Date: 20251020
  Serious: Yes (Other)
  Sender: MALLINCKRODT
  Company Number: US-MALLINCKRODT-MNK202504797

PATIENT
  Age: 48 Year
  Sex: Male

DRUGS (1)
  1. CORTICOTROPIN [Suspect]
     Active Substance: CORTICOTROPIN
     Indication: Proteinuria
     Route: 058

REACTIONS (5)
  - Blood iron decreased [Unknown]
  - Vision blurred [Unknown]
  - Glomerular filtration rate decreased [Recovering/Resolving]
  - Dehydration [Unknown]
  - Influenza [Unknown]

NARRATIVE: CASE EVENT DATE: 20250101
